FAERS Safety Report 7519748-5 (Version None)
Quarter: 2011Q2

REPORT INFORMATION
  Report Type: 
  Country: None (occurrence: None)
  Receive Date: 20110524
  Receipt Date: 20110517
  Transmission Date: 20111010
  Serious: Yes (Death)
  Sender: FDA-Public Use
  Company Number: GER/UKI/11/0018342

PATIENT
  Age: 67 Year
  Sex: Female

DRUGS (7)
  1. SERTRALINE HYDROCHLORIDE [Suspect]
     Indication: DEPRESSION
     Dosage: 100 MG, 1 IN 1 D, ORAL
     Route: 048
     Dates: start: 20110101
  2. SEROQUEL XR [Suspect]
     Indication: ANXIETY
     Dosage: 300 MG, 1 IN 1 D, ORAL
     Route: 048
     Dates: start: 20110101
  3. LANSOPRZAOLE (LANSOPRAZOLE) [Concomitant]
  4. DIAZEPAM [Concomitant]
  5. PROCHLORPERAZINE (PROCHLORPEZAINE) [Concomitant]
  6. SIMVASTATIN [Concomitant]
  7. DAKTARIN (MICONAZOLE) [Concomitant]

REACTIONS (3)
  - FEELING COLD [None]
  - OVERDOSE [None]
  - COMPLETED SUICIDE [None]
